FAERS Safety Report 19450077 (Version 2)
Quarter: 2021Q3

REPORT INFORMATION
  Report Type: Spontaneous
  Country: CH (occurrence: CH)
  Receive Date: 20210622
  Receipt Date: 20210803
  Transmission Date: 20211014
  Serious: Yes (Other)
  Sender: FDA-Public Use
  Company Number: CH-PFIZER INC-2021669028

PATIENT
  Age: 47 Year
  Sex: Male

DRUGS (2)
  1. COMIRNATY [Suspect]
     Active Substance: TOZINAMERAN
     Indication: COVID-19 IMMUNISATION
     Dosage: DOSE NUMBER UNKNOWN, SINGLE
     Route: 030
     Dates: start: 20210428, end: 20210428
  2. FELDEN [PIROXICAM] [Suspect]
     Active Substance: PIROXICAM
     Indication: ARTHRALGIA
     Dosage: UNK
     Dates: start: 20210503

REACTIONS (4)
  - Vertigo [Unknown]
  - Dizziness [Unknown]
  - Hypotonia [Unknown]
  - Deafness bilateral [Unknown]

NARRATIVE: CASE EVENT DATE: 202104
